FAERS Safety Report 13155250 (Version 2)
Quarter: 2017Q1

REPORT INFORMATION
  Report Type: Spontaneous
  Country: US (occurrence: US)
  Receive Date: 20170126
  Receipt Date: 20170216
  Transmission Date: 20170428
  Serious: Yes (Other)
  Sender: FDA-Public Use
  Company Number: US-BAYER-2017-015426

PATIENT
  Age: 39 Year
  Sex: Female

DRUGS (2)
  1. MIRENA [Suspect]
     Active Substance: LEVONORGESTREL
     Indication: MENORRHAGIA
     Dosage: 20 MCG/24HR, CONT
     Route: 015
     Dates: start: 20161205
  2. MIRENA [Suspect]
     Active Substance: LEVONORGESTREL
     Indication: DYSPAREUNIA
     Dosage: 20 MCG/24HR, CONT
     Route: 015

REACTIONS (5)
  - Genital haemorrhage [None]
  - Device dislocation [None]
  - Device expulsion [None]
  - Ovarian cyst ruptured [None]
  - Abdominal pain lower [None]

NARRATIVE: CASE EVENT DATE: 20170110
